FAERS Safety Report 11118717 (Version 2)
Quarter: 2015Q3

REPORT INFORMATION
  Report Type: Spontaneous
  Country: ES (occurrence: ES)
  Receive Date: 20150518
  Receipt Date: 20150807
  Transmission Date: 20151125
  Serious: Yes (Hospitalization, Other)
  Sender: FDA-Public Use
  Company Number: ES-JNJFOC-20150510051

PATIENT
  Age: 58 Year
  Sex: Male
  Weight: 74 kg

DRUGS (14)
  1. AZATHIOPRINE. [Suspect]
     Active Substance: AZATHIOPRINE
     Indication: PRODUCT USED FOR UNKNOWN INDICATION
     Route: 048
     Dates: start: 20120208, end: 20150505
  2. LOSARTAN. [Concomitant]
     Active Substance: LOSARTAN
     Dosage: IN EVENING
     Route: 065
  3. ADARTREL [Concomitant]
     Active Substance: ROPINIROLE
     Dosage: IN EVENING
     Route: 065
  4. LORAZEPAM. [Concomitant]
     Active Substance: LORAZEPAM
     Dosage: IN EVENING
     Route: 065
  5. ATORVASTATIN [Concomitant]
     Active Substance: ATORVASTATIN
     Dosage: IN EVENING
     Route: 065
  6. REMICADE [Suspect]
     Active Substance: INFLIXIMAB
     Indication: CROHN^S DISEASE
     Route: 042
     Dates: start: 20130501, end: 20150428
  7. CLOPIDOGREL [Concomitant]
     Active Substance: CLOPIDOGREL BISULFATE
     Dosage: AFTERNOON
     Route: 065
  8. PAZITAL [Concomitant]
     Active Substance: ACETAMINOPHEN\TRAMADOL HYDROCHLORIDE
     Dosage: MORNING
     Route: 065
  9. ADIRO [Concomitant]
     Active Substance: ASPIRIN
     Dosage: AFTERNOON
     Route: 065
  10. ATENOLOL. [Concomitant]
     Active Substance: ATENOLOL
     Dosage: MORNING
     Route: 065
  11. DUTASTERIDE. [Concomitant]
     Active Substance: DUTASTERIDE
     Dosage: IN EVENING
     Route: 065
  12. TAMSULOSIN [Concomitant]
     Active Substance: TAMSULOSIN
     Dosage: IN EVENING
     Route: 065
  13. MESALAZINE [Concomitant]
     Active Substance: MESALAMINE
     Route: 048
  14. PANTOPRAZOLE [Concomitant]
     Active Substance: PANTOPRAZOLE SODIUM
     Dosage: MORNING
     Route: 065

REACTIONS (7)
  - Pruritus generalised [Unknown]
  - Respiratory tract infection [Unknown]
  - Colitis [Unknown]
  - Acute monocytic leukaemia [Recovering/Resolving]
  - Febrile neutropenia [Unknown]
  - Haemodynamic instability [Unknown]
  - Klebsiella bacteraemia [Unknown]

NARRATIVE: CASE EVENT DATE: 2015
